FAERS Safety Report 8427376-2 (Version None)
Quarter: 2012Q2

REPORT INFORMATION
  Report Type: 
  Country: None (occurrence: None)
  Receive Date: 20120611
  Receipt Date: 20120604
  Transmission Date: 20120825
  Serious: Yes (Other)
  Sender: FDA-Public Use
  Company Number: US-UCBSA-058965

PATIENT
  Age: 23 Year
  Sex: Male
  Weight: 78.9 kg

DRUGS (2)
  1. CIMZIA [Suspect]
     Indication: CROHN'S DISEASE
     Route: 058
     Dates: start: 20120505
  2. NONE [Concomitant]

REACTIONS (1)
  - HERPES ZOSTER [None]
